FAERS Safety Report 24727773 (Version 3)
Quarter: 2025Q1

REPORT INFORMATION
  Report Type: Report from Study
  Country: US (occurrence: US)
  Receive Date: 20241212
  Receipt Date: 20250115
  Transmission Date: 20250408
  Serious: No
  Sender: ROCHE
  Company Number: US-ROCHE-10000154037

PATIENT
  Age: 60 Year
  Sex: Female
  Weight: 100 kg

DRUGS (3)
  1. XOLAIR [Suspect]
     Active Substance: OMALIZUMAB
     Indication: Food allergy
     Dosage: ANTICIPATED DATE OF TREATMENT: 15/NOV/2024
     Route: 058
     Dates: start: 20241122
  2. XOLAIR [Suspect]
     Active Substance: OMALIZUMAB
  3. XOLAIR [Suspect]
     Active Substance: OMALIZUMAB
     Indication: Food allergy
     Route: 058

REACTIONS (4)
  - Lichen sclerosus [Unknown]
  - Dermatitis contact [Unknown]
  - Seborrhoeic keratosis [Unknown]
  - Dry mouth [Not Recovered/Not Resolved]
